FAERS Safety Report 7718455-3 (Version None)
Quarter: 2011Q3

REPORT INFORMATION
  Report Type: 
  Country: None (occurrence: None)
  Receive Date: 20110830
  Receipt Date: 20110824
  Transmission Date: 20111222
  Serious: Yes (Death)
  Sender: FDA-Public Use
  Company Number: NL-ROCHE-799406

PATIENT
  Age: 59 Year

DRUGS (2)
  1. OSELTAMIVIR [Suspect]
     Indication: H1N1 INFLUENZA
     Route: 048
  2. RELENZA [Suspect]
     Indication: H1N1 INFLUENZA
     Route: 042

REACTIONS (3)
  - RESPIRATORY DISTRESS [None]
  - PATHOGEN RESISTANCE [None]
  - DRUG INEFFECTIVE [None]
